FAERS Safety Report 17616462 (Version 1)
Quarter: 2020Q2

REPORT INFORMATION
  Report Type: Spontaneous
  Country: US (occurrence: US)
  Receive Date: 20200401
  Receipt Date: 20200401
  Transmission Date: 20200713
  Serious: No
  Sender: FDA-Public Use
  Company Number: None

PATIENT
  Age: 79 Year
  Sex: Female

DRUGS (1)
  1. ENOXAPARIN 60MG/0.6ML PFS INJ [Suspect]
     Active Substance: ENOXAPARIN
     Route: 058
     Dates: start: 201806

REACTIONS (1)
  - Injection site induration [None]

NARRATIVE: CASE EVENT DATE: 20200401
